FAERS Safety Report 6707810-6 (Version None)
Quarter: 2010Q2

REPORT INFORMATION
  Report Type: 
  Country: None (occurrence: None)
  Receive Date: 20100503
  Receipt Date: 20090515
  Transmission Date: 20101027
  Serious: No
  Sender: FDA-Public Use
  Company Number: US-ASTRAZENECA-2009UW12647

PATIENT
  Sex: Female
  Weight: 62.6 kg

DRUGS (3)
  1. NEXIUM [Suspect]
     Indication: GASTRIC ULCER HAEMORRHAGE
     Route: 048
     Dates: start: 20080101
  2. XANAX [Concomitant]
  3. METHADONE HCL [Concomitant]

REACTIONS (1)
  - BURNING SENSATION [None]
